FAERS Safety Report 4798167-9 (Version None)
Quarter: 2005Q4

REPORT INFORMATION
  Report Type: 
  Country: None (occurrence: None)
  Receive Date: 20051011
  Receipt Date: 20051011
  Transmission Date: 20060501
  Serious: Yes (Death)
  Sender: FDA-Public Use
  Company Number: None

PATIENT
  Age: 68 Year
  Sex: Female
  Weight: 63.5036 kg

DRUGS (2)
  1. TAXOL [Suspect]
     Dates: start: 20050824
  2. TAXOL [Suspect]

REACTIONS (7)
  - MYOCARDIAL INFARCTION [None]
  - PACEMAKER COMPLICATION [None]
  - PROCEDURAL COMPLICATION [None]
  - STENT OCCLUSION [None]
  - THROMBOSIS IN DEVICE [None]
  - VENTRICULAR FIBRILLATION [None]
  - VENTRICULAR TACHYCARDIA [None]
